FAERS Safety Report 15713757 (Version 7)
Quarter: 2024Q4

REPORT INFORMATION
  Report Type: Spontaneous
  Country: PT (occurrence: PT)
  Receive Date: 20181212
  Receipt Date: 20241115
  Transmission Date: 20250115
  Serious: Yes (Life-Threatening, Hospitalization, Other)
  Sender: SANOFI AVENTIS
  Company Number: PT-SA-2018SA339456

PATIENT
  Age: 47 Year
  Sex: Female

DRUGS (10)
  1. XYZAL [Suspect]
     Active Substance: LEVOCETIRIZINE DIHYDROCHLORIDE
     Indication: Rash pruritic
     Dosage: UNK, UNK
  2. DEFLAZACORT [Suspect]
     Active Substance: DEFLAZACORT
     Indication: Rash pruritic
     Dosage: UNK
  3. CEFTRIAXONE [Suspect]
     Active Substance: CEFTRIAXONE
     Dosage: UNK
  4. ETORICOXIB [Suspect]
     Active Substance: ETORICOXIB
     Indication: Pain in extremity
     Dosage: 2 MG, BID
  5. ACEMETACIN [Suspect]
     Active Substance: ACEMETACIN
     Indication: Arthralgia
     Dosage: UNK
  6. ACEMETACIN [Suspect]
     Active Substance: ACEMETACIN
  7. ACEMETACIN [Suspect]
     Active Substance: ACEMETACIN
     Dosage: 90 MG, QD
     Route: 048
     Dates: start: 20161021, end: 20161111
  8. PAROXETINE HYDROCHLORIDE [Concomitant]
     Active Substance: PAROXETINE HYDROCHLORIDE
     Indication: Product used for unknown indication
     Dosage: UNK
  9. EZETIMIBE [Concomitant]
     Active Substance: EZETIMIBE
     Indication: Product used for unknown indication
     Dosage: UNK
     Route: 065
  10. MIRABEGRON [Concomitant]
     Active Substance: MIRABEGRON
     Indication: Product used for unknown indication
     Dosage: UNK

REACTIONS (20)
  - Toxic epidermal necrolysis [Recovered/Resolved]
  - Papule [Recovered/Resolved]
  - Rash pruritic [Recovered/Resolved]
  - Confusional state [Recovered/Resolved]
  - Fatigue [Recovered/Resolved]
  - Face oedema [Recovered/Resolved]
  - Hypotension [Recovered/Resolved]
  - Tachycardia [Recovered/Resolved]
  - Pyrexia [Recovered/Resolved]
  - Poor peripheral circulation [Recovered/Resolved]
  - Rash maculo-papular [Recovered/Resolved]
  - Hypoxia [Recovered/Resolved]
  - Hypocapnia [Recovered/Resolved]
  - Renal impairment [Recovered/Resolved]
  - Hepatic function abnormal [Recovered/Resolved]
  - Stasis dermatitis [Recovered/Resolved]
  - Blister [Recovered/Resolved]
  - Epidermal necrosis [Recovered/Resolved]
  - Rash macular [Recovered/Resolved]
  - Rash [Recovered/Resolved]
